FAERS Safety Report 6571939-6 (Version None)
Quarter: 2010Q1

REPORT INFORMATION
  Report Type: 
  Country: None (occurrence: None)
  Receive Date: 20100205
  Receipt Date: 20100128
  Transmission Date: 20100710
  Serious: Yes (Other)
  Sender: FDA-Public Use
  Company Number: BR-ROCHE-682683

PATIENT
  Sex: Female

DRUGS (1)
  1. ROACUTAN [Suspect]
     Indication: DRUG USE FOR UNKNOWN INDICATION
     Dosage: INTERRUPTED FOR 26 DAYS
     Route: 065
     Dates: start: 20090101

REACTIONS (2)
  - GASTRITIS [None]
  - PNEUMONIA [None]
